FAERS Safety Report 23595594 (Version 1)
Quarter: 2024Q1

REPORT INFORMATION
  Report Type: Spontaneous
  Country: US (occurrence: None)
  Receive Date: 20240304
  Receipt Date: 20240304
  Transmission Date: 20240410
  Serious: Yes (Disabling)
  Sender: FDA-Public Use
  Company Number: None

PATIENT
  Age: 34 Year
  Sex: Female
  Weight: 56.25 kg

DRUGS (1)
  1. BOTOX [Suspect]
     Active Substance: ONABOTULINUMTOXINA
     Indication: Skin wrinkling
     Route: 058
     Dates: start: 20240206

REACTIONS (9)
  - Dysphagia [None]
  - Neck pain [None]
  - Headache [None]
  - Visual field defect [None]
  - Mastication disorder [None]
  - Eyelid ptosis [None]
  - Discomfort [None]
  - Fatigue [None]
  - Neck pain [None]

NARRATIVE: CASE EVENT DATE: 20240213
